FAERS Safety Report 6853314-X (Version None)
Quarter: 2010Q3

REPORT INFORMATION
  Report Type: 
  Country: None (occurrence: None)
  Receive Date: 20100717
  Receipt Date: 20071205
  Transmission Date: 20110219
  Serious: No
  Sender: FDA-Public Use
  Company Number: US-PFIZER INC-2007104070

PATIENT
  Sex: Female
  Weight: 61.2 kg

DRUGS (6)
  1. CHANTIX [Suspect]
     Indication: SMOKING CESSATION THERAPY
     Dates: start: 20070101
  2. ZOMETA [Suspect]
     Indication: OSTEOPOROSIS
     Dates: start: 20060901, end: 20070901
  3. LEXAPRO [Concomitant]
     Indication: DEPRESSION
  4. KLONOPIN [Concomitant]
     Indication: STRESS
  5. FEMARA [Concomitant]
     Indication: BREAST CANCER
     Dates: end: 20070101
  6. PRILOSEC [Concomitant]
     Indication: GASTROOESOPHAGEAL REFLUX DISEASE

REACTIONS (6)
  - BLOOD CREATININE INCREASED [None]
  - BLOOD PRESSURE ABNORMAL [None]
  - NAUSEA [None]
  - RENAL DISORDER [None]
  - VOMITING [None]
  - WEIGHT INCREASED [None]
